FAERS Safety Report 6479800-2 (Version None)
Quarter: 2009Q4

REPORT INFORMATION
  Report Type: 
  Country: None (occurrence: None)
  Receive Date: 20091208
  Receipt Date: 20091201
  Transmission Date: 20100525
  Serious: Yes (Hospitalization)
  Sender: FDA-Public Use
  Company Number: MX-B.I. PHARMACEUTICALS,INC./RIDGEFIELD-2009-MX-00206MX

PATIENT
  Age: 13 Year
  Sex: Female
  Weight: 49 kg

DRUGS (2)
  1. MOBICOX [Suspect]
     Indication: SUICIDE ATTEMPT
     Route: 048
     Dates: start: 20091201, end: 20091201
  2. CLONAZEPAM [Suspect]
     Indication: SUICIDE ATTEMPT
     Route: 048
     Dates: start: 20091201, end: 20091201

REACTIONS (4)
  - ABDOMINAL PAIN UPPER [None]
  - ARRHYTHMIA [None]
  - DRUG ABUSE [None]
  - MYDRIASIS [None]
